FAERS Safety Report 5204134-3 (Version None)
Quarter: 2007Q1

REPORT INFORMATION
  Report Type: 
  Country: None (occurrence: None)
  Receive Date: 20070110
  Receipt Date: 20060112
  Transmission Date: 20070707
  Serious: Yes (Other)
  Sender: FDA-Public Use
  Company Number: US-BRISTOL-MYERS SQUIBB COMPANY-13209739

PATIENT
  Age: 16 Year
  Sex: Female
  Weight: 48 kg

DRUGS (4)
  1. ABILIFY [Suspect]
     Indication: AUTISM
     Route: 048
     Dates: start: 20050906, end: 20051111
  2. ABILIFY [Suspect]
     Indication: PSYCHOTIC DISORDER
     Route: 048
     Dates: start: 20050906, end: 20051111
  3. RISPERDAL [Concomitant]
     Route: 048
     Dates: start: 20020705, end: 20050906
  4. BUPROPION HCL [Concomitant]
     Route: 048
     Dates: start: 19990501, end: 20051102

REACTIONS (4)
  - DROOLING [None]
  - DYSPHAGIA [None]
  - DYSPNOEA [None]
  - MUSCULOSKELETAL STIFFNESS [None]
